FAERS Safety Report 26134477 (Version 1)
Quarter: 2025Q4

REPORT INFORMATION
  Report Type: Spontaneous
  Country: US (occurrence: US)
  Receive Date: 20251209
  Receipt Date: 20251209
  Transmission Date: 20260117
  Serious: Yes (Other)
  Sender: MERCK SHARP & DOHME LLC
  Company Number: US-009507513-2358378

PATIENT
  Age: 43 Year
  Sex: Female
  Weight: 49 kg

DRUGS (5)
  1. PEMBROLIZUMAB [Suspect]
     Active Substance: PEMBROLIZUMAB
     Indication: Triple negative breast cancer
     Dates: start: 20230303, end: 20230731
  2. ADRIAMYCIN [Suspect]
     Active Substance: DOXORUBICIN HYDROCHLORIDE
     Indication: Triple negative breast cancer
     Dates: start: 20230526, end: 20230731
  3. CARBOPLATIN [Suspect]
     Active Substance: CARBOPLATIN
     Indication: Triple negative breast cancer
     Dates: start: 20230303, end: 20230305
  4. TAXOTERE [Suspect]
     Active Substance: DOCETAXEL
     Indication: Triple negative breast cancer
     Dates: start: 20230303, end: 20230303
  5. CYTOXAN [Suspect]
     Active Substance: CYCLOPHOSPHAMIDE
     Indication: Triple negative breast cancer
     Dates: start: 20230526, end: 20230731

REACTIONS (1)
  - Chemotherapy [Unknown]
